FAERS Safety Report 10188163 (Version 1)
Quarter: 2014Q2

REPORT INFORMATION
  Report Type: Spontaneous
  Country: FR (occurrence: FR)
  Receive Date: 20140522
  Receipt Date: 20140522
  Transmission Date: 20141212
  Serious: Yes (Hospitalization)
  Sender: FDA-Public Use
  Company Number: FR-SA-2014SA059436

PATIENT
  Age: 60 Year
  Sex: Male

DRUGS (24)
  1. TAXOTERE [Suspect]
     Indication: PRODUCT USED FOR UNKNOWN INDICATION
     Route: 042
     Dates: start: 201402
  2. SOLUPRED [Suspect]
     Indication: PRODUCT USED FOR UNKNOWN INDICATION
     Route: 065
  3. CARBOPLATIN [Suspect]
     Indication: PRODUCT USED FOR UNKNOWN INDICATION
     Route: 042
     Dates: start: 201402
  4. FLUOROURACIL [Suspect]
     Indication: PRODUCT USED FOR UNKNOWN INDICATION
     Dosage: DAY 1 TO DAY 5
     Route: 042
     Dates: start: 201402
  5. EMEND [Suspect]
     Indication: PRODUCT USED FOR UNKNOWN INDICATION
     Route: 065
     Dates: start: 201402
  6. ZOPHREN [Suspect]
     Indication: PRODUCT USED FOR UNKNOWN INDICATION
     Route: 065
     Dates: start: 201402
  7. METHYLPREDNISOLONE [Suspect]
     Indication: PRODUCT USED FOR UNKNOWN INDICATION
     Route: 065
     Dates: start: 201402
  8. CELLCEPT [Suspect]
     Indication: PRODUCT USED FOR UNKNOWN INDICATION
     Route: 065
  9. ZARZIO [Concomitant]
     Dates: start: 20140227, end: 201403
  10. MOPRAL [Concomitant]
     Dosage: GASTRO-RESISTANT MICROGRANULES IN CAPSULE FORM
  11. ATENOLOL [Concomitant]
  12. AMLODIPINE [Concomitant]
  13. COMBIGAN [Concomitant]
     Dosage: EYE DROPS
  14. IMOVANE [Concomitant]
  15. TRUSOPT [Concomitant]
  16. MAG [Concomitant]
  17. VITAMIN C [Concomitant]
  18. SPECIAFOLDINE [Concomitant]
  19. DOLIPRANE [Concomitant]
     Dosage: X4 PER DAY IF NECESSARY
  20. LYRICA [Concomitant]
  21. ALPRAZOLAM [Concomitant]
     Dosage: 0.25 3X/DAY IF NEEDED
  22. HYPERIUM [Concomitant]
  23. TRIATEC [Concomitant]
  24. ALDACTONE [Concomitant]
     Dosage: TABLETS DIVISIBLE

REACTIONS (4)
  - Febrile neutropenia [Recovered/Resolved]
  - Diarrhoea [Recovered/Resolved]
  - Atrial fibrillation [Recovered/Resolved]
  - Hypokalaemia [Recovered/Resolved]
